FAERS Safety Report 4598477-4 (Version None)
Quarter: 2005Q1

REPORT INFORMATION
  Report Type: 
  Country: None (occurrence: None)
  Receive Date: 20050204
  Receipt Date: 20031208
  Transmission Date: 20050727
  Serious: Yes (Hospitalization)
  Sender: FDA-Public Use
  Company Number: PHEH2003US11186

PATIENT
  Age: 40 Year
  Sex: Male

DRUGS (1)
  1. CLOZARIL [Suspect]
     Dosage: ORAL
     Route: 048

REACTIONS (1)
  - PSYCHIATRIC EVALUATION [None]
